FAERS Safety Report 16437757 (Version 6)
Quarter: 2019Q3

REPORT INFORMATION
  Report Type: Spontaneous
  Country: ES (occurrence: ES)
  Receive Date: 20190616
  Receipt Date: 20190807
  Transmission Date: 20191004
  Serious: Yes (Other)
  Sender: FDA-Public Use
  Company Number: PHHY2019ES084279

PATIENT
  Age: 54 Year
  Sex: Female
  Weight: 97 kg

DRUGS (8)
  1. IXEKIZUMAB [Suspect]
     Active Substance: IXEKIZUMAB
     Indication: PSORIASIS
     Dosage: 80 MG, QMO (80 MG, MONTHLY (1/M)
     Route: 058
     Dates: start: 20190206
  2. CICLOSPORIN [Suspect]
     Active Substance: CYCLOSPORINE
     Indication: PRODUCT USED FOR UNKNOWN INDICATION
     Dosage: UNK
     Route: 065
  3. IXEKIZUMAB [Suspect]
     Active Substance: IXEKIZUMAB
     Dosage: 160 MG, UNK (160 MG, OTHER TWO 80 MG INJECTIONS)
     Route: 058
  4. LEXATIN [Concomitant]
     Indication: CONVERSION DISORDER
  5. ENSTILAR [Concomitant]
     Active Substance: BETAMETHASONE DIPROPIONATE\CALCIPOTRIENE HYDRATE
     Indication: PRODUCT USED FOR UNKNOWN INDICATION
     Dosage: UNK
     Route: 065
  6. SERTRALINE [Concomitant]
     Active Substance: SERTRALINE HYDROCHLORIDE
     Indication: CONVERSION DISORDER
  7. LEXATIN [Concomitant]
     Indication: NERVOUSNESS
     Dosage: UNK
     Route: 065
  8. SERTRALINE [Concomitant]
     Active Substance: SERTRALINE HYDROCHLORIDE
     Indication: NERVOUSNESS
     Dosage: UNK
     Route: 065

REACTIONS (16)
  - Therapeutic product effect decreased [Not Recovered/Not Resolved]
  - Erythema [Unknown]
  - Psoriasis [Recovering/Resolving]
  - Acne [Not Recovered/Not Resolved]
  - Decreased appetite [Not Recovered/Not Resolved]
  - Ligament sprain [Unknown]
  - Ligament sprain [Recovering/Resolving]
  - Fall [Recovered/Resolved]
  - Cough [Recovered/Resolved]
  - Gait disturbance [Unknown]
  - Injection site warmth [Unknown]
  - Injection site erythema [Unknown]
  - Alopecia [Not Recovered/Not Resolved]
  - Hot flush [Not Recovered/Not Resolved]
  - Diarrhoea [Recovering/Resolving]
  - Injection site swelling [Recovered/Resolved]

NARRATIVE: CASE EVENT DATE: 20190410
